FAERS Safety Report 9452749 (Version 2)
Quarter: 2013Q3

REPORT INFORMATION
  Report Type: Report from Study
  Country: NZ (occurrence: NZ)
  Receive Date: 20130812
  Receipt Date: 20130920
  Transmission Date: 20140515
  Serious: Yes (Hospitalization)
  Sender: FDA-Public Use
  Company Number: PHHY2013NZ085090

PATIENT
  Sex: Male

DRUGS (3)
  1. CLOZARIL [Suspect]
     Dosage: UNK
  2. CLOZARIL [Suspect]
     Dosage: UNK
     Dates: start: 20130805
  3. RISPERDAL [Suspect]
     Dosage: UNK UKN, UNK

REACTIONS (1)
  - Mental impairment [Unknown]
